FAERS Safety Report 6720038-9 (Version None)
Quarter: 2010Q2

REPORT INFORMATION
  Report Type: 
  Country: None (occurrence: None)
  Receive Date: 20100507
  Receipt Date: 20100426
  Transmission Date: 20101027
  Serious: Yes (Hospitalization)
  Sender: FDA-Public Use
  Company Number: CV20100208

PATIENT
  Age: 67 Year
  Sex: Female

DRUGS (2)
  1. ONDANSETRON (MANUFACTURER UNKNOWN) (ONDANSETRON) (ONDANSETRON) [Suspect]
     Indication: NAUSEA
     Dosage: 8 MG (54 MG, 2 IN 1 D)
  2. FLUOXETINE [Concomitant]

REACTIONS (10)
  - ACUTE MYOCARDIAL INFARCTION [None]
  - BLOOD ELECTROLYTES ABNORMAL [None]
  - BLOOD MAGNESIUM DECREASED [None]
  - BRAIN NATRIURETIC PEPTIDE INCREASED [None]
  - ELECTROCARDIOGRAM T WAVE INVERSION [None]
  - EMOTIONAL DISTRESS [None]
  - LONG QT SYNDROME [None]
  - STRESS [None]
  - STRESS CARDIOMYOPATHY [None]
  - TORSADE DE POINTES [None]
